FAERS Safety Report 7724522 (Version 2)
Quarter: 2014Q3

REPORT INFORMATION
  Report Type: Spontaneous
  Country: US (occurrence: US)
  Receive Date: 20101221
  Receipt Date: 20140717
  Transmission Date: 20150326
  Serious: Yes (Disabling, Other)
  Sender: FDA-Public Use
  Company Number: US-ROCHE-727287

PATIENT
  Age: 16 Year
  Sex: Male
  Weight: 81.6 kg

DRUGS (1)
  1. ACCUTANE [Suspect]
     Active Substance: ISOTRETINOIN
     Indication: ACNE
     Route: 065
     Dates: start: 19970203, end: 199709

REACTIONS (16)
  - Pain in extremity [Recovering/Resolving]
  - Nasal dryness [Unknown]
  - Rash [Unknown]
  - Depression [Unknown]
  - Gastrointestinal injury [Unknown]
  - Dry eye [Unknown]
  - Lip dry [Unknown]
  - Blood cholesterol increased [Unknown]
  - Colitis ulcerative [Unknown]
  - Deep vein thrombosis [Unknown]
  - Blood triglycerides increased [Unknown]
  - Hand dermatitis [Recovering/Resolving]
  - Pulmonary embolism [Unknown]
  - Headache [Unknown]
  - Suicidal ideation [Unknown]
  - Epistaxis [Unknown]

NARRATIVE: CASE EVENT DATE: 19970208
